FAERS Safety Report 26100678 (Version 1)
Quarter: 2025Q4

REPORT INFORMATION
  Report Type: Spontaneous
  Country: US (occurrence: US)
  Receive Date: 20251128
  Receipt Date: 20251128
  Transmission Date: 20260118
  Serious: Yes (Life-Threatening, Hospitalization)
  Sender: NOVARTIS
  Company Number: None

PATIENT
  Age: 60 Year
  Sex: Female

DRUGS (10)
  1. MYCOPHENOLATE MOFETIL [Suspect]
     Active Substance: MYCOPHENOLATE MOFETIL
     Indication: Immunosuppressant drug therapy
     Dosage: 1000 MG, Q12H
     Route: 065
  2. MYCOPHENOLATE MOFETIL [Suspect]
     Active Substance: MYCOPHENOLATE MOFETIL
     Dosage: UNK (LOWERED TO 500 MG)
     Route: 065
  3. TACROLIMUS [Suspect]
     Active Substance: TACROLIMUS
     Indication: Immunosuppressant drug therapy
     Dosage: GOAL 11-14 NG/ML
     Route: 065
  4. BASILIXIMAB [Suspect]
     Active Substance: BASILIXIMAB
     Indication: Immunosuppressant drug therapy
     Dosage: UNK
     Route: 065
  5. METHYLPREDNISOLONE [Suspect]
     Active Substance: METHYLPREDNISOLONE
     Indication: Immunosuppressant drug therapy
     Dosage: 1000 MG
     Route: 065
  6. METHYLPREDNISOLONE [Suspect]
     Active Substance: METHYLPREDNISOLONE
     Indication: Immunosuppression
  7. VANCOMYCIN [Concomitant]
     Active Substance: VANCOMYCIN
     Indication: Infection prophylaxis
     Dosage: UNK
     Route: 042
  8. VANCOMYCIN [Concomitant]
     Active Substance: VANCOMYCIN
     Indication: Prophylaxis
     Route: 065
  9. CEFEPIME [Concomitant]
     Active Substance: CEFEPIME HYDROCHLORIDE
     Indication: Infection prophylaxis
     Dosage: UNK
     Route: 042
  10. CEFEPIME [Concomitant]
     Active Substance: CEFEPIME HYDROCHLORIDE
     Indication: Prophylaxis
     Route: 065

REACTIONS (5)
  - Pneumonia necrotising [Recovered/Resolved]
  - Herpes simplex [Recovered/Resolved]
  - Pneumonia viral [Recovered/Resolved]
  - Pneumonia cytomegaloviral [Recovered/Resolved]
  - Acute respiratory distress syndrome [Recovered/Resolved]
